FAERS Safety Report 6569694-9 (Version None)
Quarter: 2010Q1

REPORT INFORMATION
  Report Type: 
  Country: None (occurrence: None)
  Receive Date: 20100204
  Receipt Date: 20100125
  Transmission Date: 20100710
  Serious: No
  Sender: FDA-Public Use
  Company Number: PHHY2009CA21641

PATIENT
  Sex: Male

DRUGS (3)
  1. EXJADE [Suspect]
     Indication: IRON OVERLOAD
     Dosage: 5 TABLETS DAILY
     Route: 048
  2. EXJADE [Suspect]
     Dosage: 2500 MG, QD
     Route: 048
     Dates: start: 20081101, end: 20100125
  3. ASPIRIN [Concomitant]
     Dosage: 81 MG, QD

REACTIONS (3)
  - DIARRHOEA [None]
  - SERUM FERRITIN INCREASED [None]
  - WEIGHT DECREASED [None]
